FAERS Safety Report 17111317 (Version 1)
Quarter: 2019Q4

REPORT INFORMATION
  Report Type: Spontaneous
  Country: US (occurrence: US)
  Receive Date: 20191111
  Receipt Date: 20191111
  Transmission Date: 20200122
  Serious: No
  Sender: FDA-Public Use
  Company Number: None

PATIENT
  Age: 50 Year
  Sex: Female

DRUGS (1)
  1. ENBREL [Suspect]
     Active Substance: ETANERCEPT
     Indication: PSORIATIC ARTHROPATHY
     Route: 057
     Dates: start: 201902, end: 201911

REACTIONS (2)
  - Inadequate analgesia [None]
  - Therapeutic product effect decreased [None]

NARRATIVE: CASE EVENT DATE: 20191111
